FAERS Safety Report 23824978 (Version 1)
Quarter: 2024Q2

REPORT INFORMATION
  Report Type: Spontaneous
  Country: CN (occurrence: CN)
  Receive Date: 20240507
  Receipt Date: 20240507
  Transmission Date: 20240716
  Serious: Yes (Life-Threatening, Hospitalization)
  Sender: FDA-Public Use
  Company Number: CN-Nostrum Laboratories, Inc.-2156591

PATIENT
  Age: 48 Year
  Sex: Male

DRUGS (1)
  1. HYDROCODONE BITARTRATE\IBUPROFEN [Suspect]
     Active Substance: HYDROCODONE BITARTRATE\IBUPROFEN
     Indication: Pain
     Route: 048

REACTIONS (2)
  - Myocardial infarction [Recovered/Resolved]
  - Product administration error [Recovered/Resolved]
